FAERS Safety Report 7378372-8 (Version None)
Quarter: 2011Q1

REPORT INFORMATION
  Report Type: 
  Country: None (occurrence: None)
  Receive Date: 20110328
  Receipt Date: 20110322
  Transmission Date: 20110831
  Serious: Yes (Other)
  Sender: FDA-Public Use
  Company Number: US-JNJFOC-20110302868

PATIENT
  Sex: Male
  Weight: 111.13 kg

DRUGS (4)
  1. STELARA [Suspect]
     Indication: PSORIASIS
     Route: 058
  2. ADVIL LIQUI-GELS [Concomitant]
     Indication: ARTHRALGIA
     Route: 048
  3. LOMOTIL [Concomitant]
     Indication: GASTRIC DISORDER
     Route: 048
  4. DEPAKOTE [Concomitant]
     Indication: CONVULSION
     Route: 048

REACTIONS (6)
  - DEREALISATION [None]
  - DISORIENTATION [None]
  - FULL BLOOD COUNT DECREASED [None]
  - ARTHRALGIA [None]
  - CONVULSION [None]
  - SOMNOLENCE [None]
